FAERS Safety Report 6294845-3 (Version None)
Quarter: 2009Q3

REPORT INFORMATION
  Report Type: 
  Country: None (occurrence: None)
  Receive Date: 20090803
  Receipt Date: 20090724
  Transmission Date: 20100115
  Serious: Yes (Hospitalization)
  Sender: FDA-Public Use
  Company Number: PHHY2009JP31161

PATIENT
  Sex: Male
  Weight: 45 kg

DRUGS (14)
  1. SIMULECT [Suspect]
     Indication: RENAL TRANSPLANT
     Dosage: 20 MG DAILY
     Route: 042
     Dates: start: 20080527, end: 20080527
  2. SIMULECT [Suspect]
     Dosage: 20 MG DAILY
     Route: 042
     Dates: start: 20080531, end: 20080531
  3. PROGRAF [Suspect]
     Indication: RENAL TRANSPLANT
     Dosage: 1.44 MG DAILY
     Route: 042
     Dates: start: 20080527, end: 20080603
  4. PROGRAF [Suspect]
     Dosage: 12 MG DAILY
     Route: 048
     Dates: start: 20080603
  5. CELLCEPT [Suspect]
     Indication: RENAL TRANSPLANT
     Dosage: 1000 MG DAILY
     Route: 048
     Dates: start: 20080527
  6. PREDNISOLONE [Suspect]
     Indication: RENAL TRANSPLANT
     Dosage: 50 MG DIALY
     Route: 048
     Dates: start: 20080530
  7. SOLU-MEDROL [Concomitant]
     Indication: RENAL TRANSPLANT
     Dosage: 625 MG
     Route: 042
     Dates: start: 20080527
  8. SOLU-MEDROL [Concomitant]
     Dosage: 250 MG
     Route: 042
  9. SOLU-MEDROL [Concomitant]
     Dosage: 125 MG
     Route: 042
     Dates: end: 20080529
  10. PENTCILLIN [Concomitant]
     Indication: INFECTION PROPHYLAXIS
     Dosage: 2 G
     Route: 042
     Dates: start: 20080527, end: 20080601
  11. ZANTAC [Concomitant]
     Indication: PROPHYLAXIS
     Dosage: 2 DF
     Route: 042
     Dates: start: 20080527, end: 20080529
  12. ZANTAC [Concomitant]
     Dosage: 2 DF
     Route: 048
     Dates: start: 20080530
  13. ALBUMIN (HUMAN) [Concomitant]
     Indication: HYPOALBUMINAEMIA
     Dosage: 100 ML
     Route: 042
     Dates: start: 20080527, end: 20080529
  14. BAKTAR [Concomitant]
     Indication: INFECTION PROPHYLAXIS
     Dosage: 1 DF
     Route: 048
     Dates: start: 20080528

REACTIONS (5)
  - CYTOMEGALOVIRUS ANTIGEN POSITIVE [None]
  - CYTOMEGALOVIRUS VIRAEMIA [None]
  - DIVERTICULAR PERFORATION [None]
  - PERITONITIS [None]
  - SURGERY [None]
